FAERS Safety Report 16939785 (Version 2)
Quarter: 2019Q4

REPORT INFORMATION
  Report Type: Spontaneous
  Country: JP (occurrence: JP)
  Receive Date: 20191021
  Receipt Date: 20191125
  Transmission Date: 20200122
  Serious: Yes (Life-Threatening, Other)
  Sender: FDA-Public Use
  Company Number: JP-GLAXOSMITHKLINE-JP2019JPN189927

PATIENT
  Age: 84 Year
  Sex: Male

DRUGS (2)
  1. ZANTAC [Suspect]
     Active Substance: RANITIDINE HYDROCHLORIDE
     Dosage: 150 MG, BID
     Route: 048
     Dates: start: 19990511, end: 20190930
  2. FAMOTIDINE OD [Concomitant]
     Active Substance: FAMOTIDINE
     Dosage: 10 MG, BID
     Dates: start: 20190930

REACTIONS (1)
  - Adenocarcinoma gastric [Not Recovered/Not Resolved]

NARRATIVE: CASE EVENT DATE: 20191010
